FAERS Safety Report 11145984 (Version 1)
Quarter: 2015Q2

REPORT INFORMATION
  Report Type: Spontaneous
  Country: US (occurrence: US)
  Receive Date: 20150528
  Receipt Date: 20150528
  Transmission Date: 20150821
  Serious: Yes (Hospitalization)
  Sender: FDA-Public Use
  Company Number: US-GLAXOSMITHKLINE-US2015GSK072051

PATIENT
  Age: 40 Year
  Sex: Female

DRUGS (3)
  1. FLUOXETINE [Concomitant]
     Active Substance: FLUOXETINE\FLUOXETINE HYDROCHLORIDE
     Indication: PRODUCT USED FOR UNKNOWN INDICATION
  2. MIRAPEX [Concomitant]
     Active Substance: PRAMIPEXOLE DIHYDROCHLORIDE
     Indication: PRODUCT USED FOR UNKNOWN INDICATION
  3. ALLI [Suspect]
     Active Substance: ORLISTAT
     Indication: PRODUCT USED FOR UNKNOWN INDICATION
     Dosage: OTC ALLI PILL TID PO FOR 2 WEEKS PRIOR TO SYMPTOMS
     Route: 048

REACTIONS (9)
  - Anaemia [Unknown]
  - Headache [Unknown]
  - Abdominal pain [Unknown]
  - Pyrexia [Unknown]
  - Arthralgia [Unknown]
  - Rash [Unknown]
  - Hepatic function abnormal [Unknown]
  - Fatigue [Unknown]
  - Oedema peripheral [Unknown]
